FAERS Safety Report 4941317-1 (Version None)
Quarter: 2006Q1

REPORT INFORMATION
  Report Type: 
  Country: None (occurrence: None)
  Receive Date: 20060313
  Receipt Date: 20050824
  Transmission Date: 20060701
  Serious: Yes (Hospitalization)
  Sender: FDA-Public Use
  Company Number: US-MERCK-0508USA04121

PATIENT
  Age: 45 Year
  Sex: Male

DRUGS (6)
  1. VIOXX [Suspect]
     Indication: ARTHRITIS
     Route: 048
     Dates: start: 19990804, end: 20040101
  2. VIOXX [Suspect]
     Route: 048
  3. ENBREL [Concomitant]
     Route: 065
  4. [THERAPY UNSPECIFIED] [Concomitant]
     Route: 065
  5. FOLIC ACID [Concomitant]
     Route: 065
  6. CELEXA [Concomitant]
     Route: 065

REACTIONS (11)
  - BURNS SECOND DEGREE [None]
  - CELLULITIS [None]
  - CHEST DISCOMFORT [None]
  - CORONARY ARTERY DISEASE [None]
  - MUSCULOSKELETAL CHEST PAIN [None]
  - MYOCARDIAL INFARCTION [None]
  - OEDEMA [None]
  - OTITIS MEDIA [None]
  - PHARYNGITIS [None]
  - SINUSITIS [None]
  - SYNCOPE [None]
